FAERS Safety Report 4653989-X (Version None)
Quarter: 2005Q2

REPORT INFORMATION
  Report Type: 
  Country: None (occurrence: None)
  Receive Date: 20050404
  Receipt Date: 20041201
  Transmission Date: 20051028
  Serious: No
  Sender: FDA-Public Use
  Company Number: USA041284969

PATIENT
  Age: 55 Year
  Sex: Female

DRUGS (3)
  1. CYMBALTA [Suspect]
     Indication: MIGRAINE
     Dosage: 20 MG DAY
     Dates: start: 20041123, end: 20041123
  2. NORTRIPTYLINE [Concomitant]
  3. PROTONIX [Concomitant]

REACTIONS (2)
  - MIGRAINE [None]
  - NAUSEA [None]
